FAERS Safety Report 4628293-6 (Version None)
Quarter: 2005Q2

REPORT INFORMATION
  Report Type: 
  Country: None (occurrence: None)
  Receive Date: 20050404
  Receipt Date: 20050322
  Transmission Date: 20051028
  Serious: Yes (Other)
  Sender: FDA-Public Use
  Company Number: 2004223216FR

PATIENT
  Age: 85 Year
  Sex: Female

DRUGS (4)
  1. CELEBREX [Suspect]
     Indication: OSTEOARTHRITIS
     Dosage: 200 MG (200 MG, 1 IN 1 D), ORAL
     Route: 048
     Dates: start: 20040101, end: 20040101
  2. ROFECOXIB [Suspect]
     Indication: OSTEOARTHRITIS
     Dosage: (200 MG )
  3. ALDACTAZINE (ALTIZIDE, SPIRONOLACTONE) [Concomitant]
  4. GLICLAZIDE (GLICAZIDE) [Concomitant]

REACTIONS (2)
  - ACUTE PULMONARY OEDEMA [None]
  - HYPERTENSION [None]
